FAERS Safety Report 5636362-7 (Version None)
Quarter: 2008Q1

REPORT INFORMATION
  Report Type: 
  Country: None (occurrence: None)
  Receive Date: 20080225
  Receipt Date: 20080212
  Transmission Date: 20080703
  Serious: Yes (Life-Threatening, Other)
  Sender: FDA-Public Use
  Company Number: US-AMGEN-US264582

PATIENT
  Sex: Female
  Weight: 65.4 kg

DRUGS (5)
  1. NEULASTA [Suspect]
     Indication: CHEMOTHERAPY
     Route: 058
     Dates: start: 20080129, end: 20080129
  2. AVASTIN [Concomitant]
     Dates: start: 20080128
  3. ADRIAMYCIN PFS [Concomitant]
     Dates: start: 20080128
  4. CYTOXAN [Concomitant]
     Dates: start: 20080128
  5. PACLITAXEL [Concomitant]
     Dates: start: 20080128

REACTIONS (3)
  - ANGIOEDEMA [None]
  - HYPERSENSITIVITY [None]
  - URTICARIA [None]
